FAERS Safety Report 21437040 (Version 2)
Quarter: 2022Q4

REPORT INFORMATION
  Report Type: Spontaneous
  Country: BR (occurrence: BR)
  Receive Date: 20221010
  Receipt Date: 20221123
  Transmission Date: 20230112
  Serious: Yes (Other)
  Sender: FDA-Public Use
  Company Number: BR-NOVARTISPH-NVSC2022BR226849

PATIENT
  Sex: Female

DRUGS (1)
  1. DOXYCYCLINE [Suspect]
     Active Substance: DOXYCYCLINE
     Indication: Rhinitis
     Dosage: UNK (15 TAB BR)
     Route: 065

REACTIONS (7)
  - Renal pain [Unknown]
  - Dysuria [Recovering/Resolving]
  - Tremor [Unknown]
  - Skin discolouration [Unknown]
  - Insomnia [Unknown]
  - Nausea [Unknown]
  - Physical product label issue [Unknown]
